FAERS Safety Report 14244604 (Version 4)
Quarter: 2018Q3

REPORT INFORMATION
  Report Type: Spontaneous
  Country: ES (occurrence: ES)
  Receive Date: 20171201
  Receipt Date: 20180716
  Transmission Date: 20181010
  Serious: Yes (Other)
  Sender: FDA-Public Use
  Company Number: ES-PFIZER INC-2017511674

PATIENT
  Age: 79 Year
  Sex: Male

DRUGS (1)
  1. CILASTATIN/IMIPENEM [Suspect]
     Active Substance: CILASTATIN SODIUM\IMIPENEM
     Dosage: 500 MG, DAILY
     Route: 042

REACTIONS (3)
  - Thrombocytopenia [Recovered/Resolved]
  - Escherichia urinary tract infection [Recovered/Resolved]
  - Platelet aggregation [Recovered/Resolved]
